FAERS Safety Report 14507244 (Version 1)
Quarter: 2018Q1

REPORT INFORMATION
  Report Type: Spontaneous
  Country: PL (occurrence: PL)
  Receive Date: 20180208
  Receipt Date: 20180208
  Transmission Date: 20180509
  Serious: Yes (Other)
  Sender: FDA-Public Use
  Company Number: PL-TEVA-2018-PL-855866

PATIENT
  Sex: Male

DRUGS (1)
  1. METFORMAX [Suspect]
     Active Substance: METFORMIN HYDROCHLORIDE
     Dates: start: 2017, end: 201801

REACTIONS (7)
  - Vomiting [Recovered/Resolved]
  - Dry mouth [Recovered/Resolved]
  - Thirst [Recovered/Resolved]
  - Eye disorder [Recovered/Resolved]
  - Rash [Recovered/Resolved]
  - Pollakiuria [Recovered/Resolved]
  - Uraemic acidosis [Unknown]

NARRATIVE: CASE EVENT DATE: 201801
